FAERS Safety Report 10194696 (Version 1)
Quarter: 2014Q2

REPORT INFORMATION
  Report Type: Spontaneous
  Country: GB (occurrence: GB)
  Receive Date: 20140526
  Receipt Date: 20140526
  Transmission Date: 20141212
  Serious: Yes (Hospitalization)
  Sender: FDA-Public Use
  Company Number: GB-AMGEN-GBRSP2014037228

PATIENT
  Age: 49 Year
  Sex: Female
  Weight: 57.5 kg

DRUGS (8)
  1. XGEVA [Suspect]
     Indication: METASTASES TO BONE
     Dosage: 120 MG, UNK
     Route: 058
     Dates: start: 20140127, end: 20140504
  2. ADCAL D3 [Concomitant]
     Dosage: 1 DF, BID
     Dates: start: 20131007
  3. CAPECITABINE [Concomitant]
     Indication: BREAST CANCER METASTATIC
     Dosage: 2000 MG, BID
     Dates: start: 20140106
  4. CITALOPRAM [Concomitant]
     Indication: DEPRESSION
     Dosage: 20 MG, QD
     Dates: start: 20140306
  5. FENTANYL [Concomitant]
     Indication: PAIN
     Dosage: 100 MUG, UNK
     Dates: start: 20130125
  6. MACROGOL [Concomitant]
     Indication: CONSTIPATION
     Dosage: UNK
     Dates: start: 20130828
  7. PREGABALIN [Concomitant]
     Dosage: 275 MG, BID
     Dates: start: 20131021
  8. ZOPICLONE [Concomitant]
     Indication: INSOMNIA
     Dosage: 3.75 MG, AS NECESSARY
     Dates: start: 20140214

REACTIONS (3)
  - Hypersensitivity [Not Recovered/Not Resolved]
  - Pleural effusion [Unknown]
  - Dyspnoea [Unknown]
